FAERS Safety Report 14220962 (Version 1)
Quarter: 2017Q4

REPORT INFORMATION
  Report Type: Spontaneous
  Country: CA (occurrence: CA)
  Receive Date: 20171124
  Receipt Date: 20171124
  Transmission Date: 20180321
  Serious: Yes (Death)
  Sender: FDA-Public Use
  Company Number: CA-PFIZER INC-2017498872

PATIENT
  Age: 73 Year
  Sex: Male

DRUGS (1)
  1. SUTENT [Suspect]
     Active Substance: SUNITINIB MALATE
     Dosage: 37.5 MG, CYCLIC (DAILY X 2 WEEKS THEN 1 WEEK OFF)
     Route: 048
     Dates: start: 20161104, end: 20170822

REACTIONS (1)
  - Death [Fatal]

NARRATIVE: CASE EVENT DATE: 20170822
